FAERS Safety Report 5767639-2 (Version None)
Quarter: 2008Q2

REPORT INFORMATION
  Report Type: 
  Country: None (occurrence: None)
  Receive Date: 20080612
  Receipt Date: 20080605
  Transmission Date: 20081010
  Serious: Yes (Other)
  Sender: FDA-Public Use
  Company Number: GR-PFIZER INC-2008047941

PATIENT
  Sex: Male

DRUGS (1)
  1. MEDROL [Suspect]

REACTIONS (1)
  - DYSPNOEA [None]
